FAERS Safety Report 5869546-3 (Version None)
Quarter: 2008Q3

REPORT INFORMATION
  Report Type: 
  Country: None (occurrence: None)
  Receive Date: 20080828
  Receipt Date: 20080818
  Transmission Date: 20090109
  Serious: Yes (Death, Life-Threatening, Hospitalization, Other)
  Sender: FDA-Public Use
  Company Number: 2005-02126

PATIENT
  Age: 59 Year
  Sex: Female
  Weight: 59.8 kg

DRUGS (4)
  1. VELCADE [Suspect]
     Indication: MULTIPLE MYELOMA
     Dosage: 1.14 MG/M2, INTRAVENOUS; 1.30 MG/M2
     Route: 042
     Dates: start: 20050926, end: 20051006
  2. THALIDOMIDE [Concomitant]
  3. CLARITHROMYCIN [Concomitant]
  4. SULFAMETHOXAZOLE AND TRIMETHOPRIM [Concomitant]

REACTIONS (24)
  - ACUTE RESPIRATORY FAILURE [None]
  - AMYLOIDOSIS [None]
  - AORTIC ARTERIOSCLEROSIS [None]
  - ASTHMA [None]
  - BLOOD FIBRINOGEN INCREASED [None]
  - BLOOD IMMUNOGLOBULIN G INCREASED [None]
  - BLOOD LACTATE DEHYDROGENASE INCREASED [None]
  - BLOOD PH DECREASED [None]
  - BRONCHIAL WALL THICKENING [None]
  - BRONCHOALVEOLAR LAVAGE ABNORMAL [None]
  - BRONCHOSTENOSIS [None]
  - C-REACTIVE PROTEIN INCREASED [None]
  - FIBRIN D DIMER INCREASED [None]
  - FIBRIN DEGRADATION PRODUCTS INCREASED [None]
  - HYPERTENSION [None]
  - LUNG DISORDER [None]
  - LUNG INFILTRATION [None]
  - PLATELET COUNT DECREASED [None]
  - PLEURAL EFFUSION [None]
  - PLEURAL FIBROSIS [None]
  - PNEUMONIA ASPIRATION [None]
  - PULMONARY ARTERY DILATATION [None]
  - PYREXIA [None]
  - WHITE BLOOD CELL COUNT DECREASED [None]
